FAERS Safety Report 23498964 (Version 1)
Quarter: 2024Q1

REPORT INFORMATION
  Report Type: Spontaneous
  Country: IT (occurrence: IT)
  Receive Date: 20240208
  Receipt Date: 20240208
  Transmission Date: 20240410
  Serious: Yes (Other)
  Sender: FDA-Public Use
  Company Number: None

PATIENT
  Age: 71 Year
  Sex: Male

DRUGS (10)
  1. OPDIVO [Suspect]
     Active Substance: NIVOLUMAB
     Indication: Adenocarcinoma gastric
     Route: 042
     Dates: start: 20231006
  2. OPDIVO [Suspect]
     Active Substance: NIVOLUMAB
     Dosage: 5TH CYCLE OF THERAPY
     Dates: start: 20231204
  3. OPDIVO [Suspect]
     Active Substance: NIVOLUMAB
     Dosage: 3RD CYCLE OF THERAPY
     Dates: start: 20231106
  4. OXALIPLATIN [Suspect]
     Active Substance: OXALIPLATIN
     Indication: Adenocarcinoma gastric
     Route: 042
     Dates: start: 20231006
  5. OXALIPLATIN [Suspect]
     Active Substance: OXALIPLATIN
     Dosage: 5TH CYCLE OF THERAPY
     Dates: start: 20231204
  6. OXALIPLATIN [Suspect]
     Active Substance: OXALIPLATIN
     Dosage: 3RD CYCLE OF THERAPY
     Dates: start: 20231106
  7. FLUOROURACIL [Suspect]
     Active Substance: FLUOROURACIL
     Indication: Adenocarcinoma gastric
     Dosage: 580 MG (BOLUS) + 3500 MG (ELASTOMER)
     Route: 042
     Dates: start: 20231006
  8. FLUOROURACIL [Suspect]
     Active Substance: FLUOROURACIL
     Dosage: (5TH CYCLE OF THERAPY): FLUOROURACIL HIKMA (BOLUS + ELASTOMER)
     Dates: start: 20231204
  9. FLUOROURACIL [Suspect]
     Active Substance: FLUOROURACIL
     Dosage: (3RD CYCLE OF THERAPY): FLUOROURACIL HIKMA (BOLUS + ELASTOMER)
     Dates: start: 20231106
  10. LEUCOVORIN CALCIUM [Concomitant]
     Active Substance: LEUCOVORIN CALCIUM
     Indication: Product used for unknown indication
     Route: 042
     Dates: start: 20231006

REACTIONS (5)
  - Thrombocytopenia [Recovering/Resolving]
  - Abdominal pain [Recovering/Resolving]
  - Asthenia [Recovering/Resolving]
  - Pyrexia [Recovered/Resolved]
  - Diarrhoea [Not Recovered/Not Resolved]

NARRATIVE: CASE EVENT DATE: 20231110
